FAERS Safety Report 16007015 (Version 1)
Quarter: 2019Q1

REPORT INFORMATION
  Report Type: Spontaneous
  Country: US (occurrence: US)
  Receive Date: 20190226
  Receipt Date: 20190226
  Transmission Date: 20190418
  Serious: No
  Sender: FDA-Public Use
  Company Number: US-BAYER-2019-040135

PATIENT
  Age: 42 Year
  Sex: Female
  Weight: 64.4 kg

DRUGS (2)
  1. CLARITIN-D 24 HOUR [Suspect]
     Active Substance: LORATADINE\PSEUDOEPHEDRINE SULFATE
     Indication: HYPERSENSITIVITY
     Dosage: 1 DF
     Route: 048
     Dates: start: 20190223, end: 20190223
  2. CLARITIN-D 24 HOUR [Suspect]
     Active Substance: LORATADINE\PSEUDOEPHEDRINE SULFATE
     Indication: NASOPHARYNGITIS

REACTIONS (9)
  - Migraine [Recovered/Resolved]
  - Tremor [Recovered/Resolved]
  - Adverse event [Unknown]
  - Dizziness [Recovered/Resolved]
  - Cognitive disorder [Recovered/Resolved]
  - Nausea [Recovered/Resolved]
  - Impaired driving ability [Recovered/Resolved]
  - Malaise [Recovered/Resolved]
  - Movement disorder [None]

NARRATIVE: CASE EVENT DATE: 20190223
